FAERS Safety Report 5564988-8 (Version None)
Quarter: 2007Q4

REPORT INFORMATION
  Report Type: 
  Country: None (occurrence: None)
  Receive Date: 20071218
  Receipt Date: 20071217
  Transmission Date: 20080405
  Serious: Yes (Other)
  Sender: FDA-Public Use
  Company Number: D0055406A

PATIENT
  Age: 26 Year
  Sex: Male
  Weight: 78 kg

DRUGS (3)
  1. COMBIVIR [Suspect]
     Indication: HIV INFECTION
     Route: 048
     Dates: start: 20020101
  2. VIRAMUNE [Suspect]
     Indication: HIV INFECTION
     Route: 048
     Dates: start: 20020101
  3. HALDOL [Concomitant]
     Dosage: 5MG PER DAY
     Route: 048
     Dates: start: 20020101

REACTIONS (1)
  - ANAEMIA MEGALOBLASTIC [None]
